FAERS Safety Report 13927206 (Version 1)
Quarter: 2017Q3

REPORT INFORMATION
  Report Type: Spontaneous
  Country: US (occurrence: US)
  Receive Date: 20170831
  Receipt Date: 20170831
  Transmission Date: 20171127
  Serious: Yes (Hospitalization)
  Sender: FDA-Public Use
  Company Number: None

PATIENT
  Age: 58 Year
  Sex: Male
  Weight: 81 kg

DRUGS (5)
  1. XARELTO [Concomitant]
     Active Substance: RIVAROXABAN
  2. IBUPROFEN. [Concomitant]
     Active Substance: IBUPROFEN
  3. APIXABAN [Suspect]
     Active Substance: APIXABAN
     Indication: PULMONARY EMBOLISM
     Route: 048
     Dates: start: 20170811, end: 20170830
  4. ALBUTEROL INHALER [Concomitant]
     Active Substance: ALBUTEROL
  5. LORAZEPAM. [Concomitant]
     Active Substance: LORAZEPAM

REACTIONS (3)
  - Throat tightness [None]
  - Wheezing [None]
  - Asthma [None]

NARRATIVE: CASE EVENT DATE: 20170829
